FAERS Safety Report 18247014 (Version 1)
Quarter: 2020Q3

REPORT INFORMATION
  Report Type: Spontaneous
  Country: US (occurrence: US)
  Receive Date: 20200909
  Receipt Date: 20200909
  Transmission Date: 20201103
  Serious: Yes (Other)
  Sender: FDA-Public Use
  Company Number: US-GLAXOSMITHKLINE-US2020AMR180744

PATIENT

DRUGS (1)
  1. TRELEGY ELLIPTA [Suspect]
     Active Substance: FLUTICASONE FUROATE\UMECLIDINIUM BROMIDE\VILANTEROL TRIFENATATE
     Indication: PRODUCT USED FOR UNKNOWN INDICATION
     Dosage: UNK

REACTIONS (11)
  - Abdominal pain [Unknown]
  - Tremor [Unknown]
  - Cough [Unknown]
  - Dizziness [Unknown]
  - Constipation [Unknown]
  - Bone pain [Unknown]
  - Chest pain [Unknown]
  - Urinary retention [Unknown]
  - Headache [Unknown]
  - Urinary incontinence [Unknown]
  - Back pain [Unknown]
